FAERS Safety Report 6265928-9 (Version None)
Quarter: 2009Q3

REPORT INFORMATION
  Report Type: 
  Country: None (occurrence: None)
  Receive Date: 20090713
  Receipt Date: 20090709
  Transmission Date: 20100115
  Serious: Yes (Death)
  Sender: FDA-Public Use
  Company Number: PHHY2009GB28367

PATIENT

DRUGS (1)
  1. SANDOSTATIN [Suspect]
     Indication: NEUROENDOCRINE TUMOUR

REACTIONS (1)
  - DEATH [None]
